FAERS Safety Report 9913027 (Version 1)
Quarter: 2014Q1

REPORT INFORMATION
  Report Type: Spontaneous
  Country: CN (occurrence: None)
  Receive Date: 20140214
  Receipt Date: 20140214
  Transmission Date: 20141002
  Serious: Yes (Other)
  Sender: FDA-Public Use
  Company Number: B0967965A

PATIENT
  Sex: Female

DRUGS (1)
  1. PAROXETINE HYDROCHLORIDE [Suspect]
     Indication: DEPRESSION
     Route: 048
     Dates: start: 20140115, end: 20140206

REACTIONS (9)
  - Convulsion [None]
  - Dizziness [None]
  - Palpitations [None]
  - Muscle spasms [None]
  - Eyelid disorder [None]
  - Suicidal behaviour [None]
  - Discomfort [None]
  - Depression [None]
  - Treatment noncompliance [None]
